FAERS Safety Report 17095444 (Version 1)
Quarter: 2019Q4

REPORT INFORMATION
  Report Type: Spontaneous
  Country: US (occurrence: US)
  Receive Date: 20191201
  Receipt Date: 20191201
  Transmission Date: 20200122
  Serious: No
  Sender: FDA-Public Use
  Company Number: US-009507513-1911USA000930

PATIENT
  Age: 5 Year
  Sex: Female

DRUGS (1)
  1. SINGULAIR [Suspect]
     Active Substance: MONTELUKAST SODIUM
     Indication: PREMEDICATION
     Dosage: 5 MILLIGRAM
     Route: 048

REACTIONS (1)
  - Product use in unapproved indication [Unknown]
